FAERS Safety Report 12905378 (Version 1)
Quarter: 2016Q4

REPORT INFORMATION
  Report Type: Report from Study
  Country: IT (occurrence: IT)
  Receive Date: 20161103
  Receipt Date: 20161103
  Transmission Date: 20170207
  Serious: Yes (Other)
  Sender: FDA-Public Use
  Company Number: IT-ROCHE-1847491

PATIENT

DRUGS (2)
  1. CAPECITABINE. [Suspect]
     Active Substance: CAPECITABINE
     Indication: BREAST CANCER METASTATIC
     Dosage: 150 AND 500 MG TABLETS?AT HOME WITHIN 30 MIN AFTER THE END OF A MEAL (BREAKFAST, DINNER) WITH WATER
     Route: 048
  2. VINORELBINE [Suspect]
     Active Substance: VINORELBINE\VINORELBINE TARTRATE
     Indication: BREAST CANCER METASTATIC
     Dosage: IN TWO DOSE STRENGTHS (30 AND 40 MG)
     Route: 048

REACTIONS (15)
  - Neutropenia [Unknown]
  - Cellulitis [Unknown]
  - Phlebitis [Unknown]
  - Abdominal pain [Unknown]
  - Febrile neutropenia [Unknown]
  - Skin exfoliation [Unknown]
  - Diarrhoea [Unknown]
  - Nausea [Unknown]
  - Constipation [Unknown]
  - Vomiting [Unknown]
  - Fatigue [Unknown]
  - Petechiae [Unknown]
  - Purpura [Unknown]
  - Thrombosis [Unknown]
  - Thrombocytopenia [Unknown]
